FAERS Safety Report 5202306-5 (Version None)
Quarter: 2007Q1

REPORT INFORMATION
  Report Type: 
  Country: None (occurrence: None)
  Receive Date: 20070109
  Receipt Date: 20070103
  Transmission Date: 20070707
  Serious: No
  Sender: FDA-Public Use
  Company Number: US-ELI_LILLY_AND_COMPANY-US200611001885

PATIENT
  Age: 62 Year
  Sex: Male

DRUGS (1)
  1. HUMULIN 70/30 [Suspect]
     Dosage: UNK, UNKNOWN
     Dates: start: 19990101

REACTIONS (2)
  - NO ADVERSE DRUG EFFECT [None]
  - PHARMACEUTICAL PRODUCT COMPLAINT [None]
